FAERS Safety Report 10003874 (Version 1)
Quarter: 2014Q1

REPORT INFORMATION
  Report Type: Report from Study
  Country: US (occurrence: US)
  Receive Date: 20140312
  Receipt Date: 20140312
  Transmission Date: 20141002
  Serious: Yes (Death)
  Sender: FDA-Public Use
  Company Number: PHEH2014US004884

PATIENT
  Sex: Female

DRUGS (1)
  1. EXJADE [Suspect]
     Indication: POLYCYTHAEMIA
     Dosage: 750 MG, QD
     Route: 048

REACTIONS (1)
  - Death [Fatal]
